FAERS Safety Report 20175078 (Version 1)
Quarter: 2021Q4

REPORT INFORMATION
  Report Type: Spontaneous
  Country: US (occurrence: None)
  Receive Date: 20211210
  Receipt Date: 20211210
  Transmission Date: 20220303
  Serious: No
  Sender: FDA-Public Use
  Company Number: None

PATIENT
  Age: 37 Year
  Sex: Male

DRUGS (1)
  1. VIGABATRIN [Suspect]
     Active Substance: VIGABATRIN
     Indication: Seizure
     Dosage: FREQUENCY : TWICE A DAY;?
     Route: 048
     Dates: start: 20211209, end: 20211209

REACTIONS (2)
  - Seizure [None]
  - Product dose omission issue [None]

NARRATIVE: CASE EVENT DATE: 20211209
